FAERS Safety Report 6122940-8 (Version None)
Quarter: 2009Q1

REPORT INFORMATION
  Report Type: 
  Country: None (occurrence: None)
  Receive Date: 20090318
  Receipt Date: 20080515
  Transmission Date: 20090719
  Serious: No
  Sender: FDA-Public Use
  Company Number: US-AMGEN-KDL279915

PATIENT
  Sex: Female

DRUGS (5)
  1. NEULASTA [Suspect]
     Indication: CHEMOTHERAPY
     Dates: start: 20080502
  2. TAXOL [Concomitant]
  3. CARBOPLATIN [Concomitant]
  4. DECADRON [Concomitant]
  5. EMEND [Concomitant]

REACTIONS (4)
  - BONE PAIN [None]
  - LIP SWELLING [None]
  - SWELLING [None]
  - URTICARIA [None]
